FAERS Safety Report 9049000 (Version 1)
Quarter: 2013Q1

REPORT INFORMATION
  Report Type: Spontaneous
  Country: GB (occurrence: GB)
  Receive Date: 20130204
  Receipt Date: 20130204
  Transmission Date: 20140127
  Serious: Yes (Other)
  Sender: FDA-Public Use
  Company Number: GB-MYLANLABS-2013S1001477

PATIENT
  Age: 46 Year
  Sex: Male

DRUGS (2)
  1. LAMOTRIGINE [Suspect]
     Indication: CONVULSION
     Dates: start: 199901
  2. CELLCEPT /01275102/ [Concomitant]
     Indication: PRODUCT USED FOR UNKNOWN INDICATION

REACTIONS (13)
  - Drug ineffective [Unknown]
  - Chorioretinitis [Not Recovered/Not Resolved]
  - Dyspnoea [Unknown]
  - Lip pain [Unknown]
  - Nightmare [Unknown]
  - Parasomnia [Unknown]
  - Partial seizures [Unknown]
  - Post-traumatic headache [Unknown]
  - Respiration abnormal [Unknown]
  - Retinal degeneration [Unknown]
  - Glossodynia [Unknown]
  - Muscle twitching [Unknown]
  - Blindness unilateral [Unknown]
